FAERS Safety Report 25989720 (Version 1)
Quarter: 2025Q4

REPORT INFORMATION
  Report Type: Spontaneous
  Country: US (occurrence: US)
  Receive Date: 20251103
  Receipt Date: 20251103
  Transmission Date: 20260118
  Serious: Yes (Hospitalization, Other)
  Sender: AMGEN
  Company Number: US-AMGEN-USASP2025213823

PATIENT
  Age: 74 Year
  Sex: Female

DRUGS (1)
  1. EVENITY [Suspect]
     Active Substance: ROMOSOZUMAB-AQQG
     Indication: Product used for unknown indication
     Dosage: 210 MILLIGRAM, Q2WK
     Route: 058
     Dates: start: 202507

REACTIONS (3)
  - Ankle fracture [Not Recovered/Not Resolved]
  - Hypocalcaemia [Unknown]
  - Fall [Unknown]

NARRATIVE: CASE EVENT DATE: 20250101
